FAERS Safety Report 19102148 (Version 1)
Quarter: 2021Q2

REPORT INFORMATION
  Report Type: Spontaneous
  Country: NO (occurrence: NO)
  Receive Date: 20210407
  Receipt Date: 20210407
  Transmission Date: 20210717
  Serious: Yes (Hospitalization)
  Sender: FDA-Public Use
  Company Number: NO-JNJFOC-20210401553

PATIENT
  Age: 26 Year
  Sex: Male

DRUGS (4)
  1. PREDNISOLONE. [Concomitant]
     Active Substance: PREDNISOLONE
     Indication: COLITIS ULCERATIVE
     Dosage: PREDNISOLONE: 5MG;
     Route: 048
     Dates: end: 2020
  2. MEZAVANT [Concomitant]
     Active Substance: MESALAMINE
     Indication: COLITIS ULCERATIVE
     Dosage: 1200MG
  3. INFLIXIMAB, RECOMBINANT [Suspect]
     Active Substance: INFLIXIMAB
     Indication: COLITIS ULCERATIVE
     Dosage: INITIALLY 400 MG (DOSE INTERVAL NOT STATED). FROM SEPTEMBER 2020, DOSE INCREASED TO 800 MG EVERY ...
     Route: 042
     Dates: start: 202005
  4. INFLIXIMAB, RECOMBINANT [Suspect]
     Active Substance: INFLIXIMAB
     Route: 042
     Dates: start: 202009, end: 20201027

REACTIONS (6)
  - Cough [Recovered/Resolved]
  - Mononeuropathy multiplex [Not Recovered/Not Resolved]
  - Influenza like illness [Recovered/Resolved]
  - General physical health deterioration [Recovering/Resolving]
  - Lung infiltration [Recovering/Resolving]
  - Dyspnoea exertional [Recovering/Resolving]

NARRATIVE: CASE EVENT DATE: 202010
